FAERS Safety Report 10226739 (Version 1)
Quarter: 2014Q2

REPORT INFORMATION
  Report Type: Spontaneous
  Country: FR (occurrence: FR)
  Receive Date: 20140610
  Receipt Date: 20140610
  Transmission Date: 20141212
  Serious: Yes (Hospitalization)
  Sender: FDA-Public Use
  Company Number: PHHY2014FR069564

PATIENT
  Age: 46 Year
  Sex: Male
  Weight: 56 kg

DRUGS (8)
  1. AMOXICILLIN CLAVULANIC ACID SANDOZ [Suspect]
     Indication: ANTIBIOTIC PROPHYLAXIS
     Dosage: 4 G, Q4H
     Route: 042
     Dates: start: 20140516, end: 20140516
  2. MIDAZOLAM [Concomitant]
     Indication: ANAESTHESIA
     Route: 065
  3. SUFENTANIL [Concomitant]
     Route: 065
  4. DIPRIVAN [Concomitant]
     Indication: ANAESTHESIA
     Route: 065
  5. TRACRIUM [Concomitant]
     Indication: ANAESTHESIA
     Route: 065
  6. ACUPAN [Concomitant]
     Indication: ANAESTHESIA
     Route: 065
  7. PERFALGAN [Concomitant]
     Indication: ANAESTHESIA
     Route: 065
  8. KETAMINE [Concomitant]
     Indication: ANAESTHESIA
     Route: 065

REACTIONS (3)
  - Haematuria [Recovering/Resolving]
  - Oliguria [Recovering/Resolving]
  - Renal failure acute [Recovering/Resolving]
